FAERS Safety Report 9243153 (Version 1)
Quarter: 2013Q2

REPORT INFORMATION
  Report Type: Spontaneous
  Country: US (occurrence: US)
  Receive Date: 20130419
  Receipt Date: 20130419
  Transmission Date: 20140414
  Serious: Yes (Hospitalization)
  Sender: FDA-Public Use
  Company Number: US-ROXANE LABORATORIES, INC.-2013-RO-00493RO

PATIENT
  Age: 43 Year
  Sex: Male

DRUGS (3)
  1. LITHIUM CARBONATE [Suspect]
     Indication: SCHIZOAFFECTIVE DISORDER
     Dates: start: 2011
  2. PALIPERIDONE [Suspect]
  3. HALOPERIDOL [Suspect]

REACTIONS (3)
  - Nephrogenic diabetes insipidus [Unknown]
  - Polydipsia psychogenic [Unknown]
  - Hyponatraemia [Unknown]
